FAERS Safety Report 6739716-0 (Version None)
Quarter: 2010Q2

REPORT INFORMATION
  Report Type: 
  Country: None (occurrence: None)
  Receive Date: 20100521
  Receipt Date: 20100507
  Transmission Date: 20101027
  Serious: Yes (Death, Life-Threatening, Hospitalization)
  Sender: FDA-Public Use
  Company Number: CLOF-10615

PATIENT
  Age: 39 Year
  Sex: Male

DRUGS (23)
  1. CLOFARABINE (CLOFARABINE) SOLUTION FOR INFUSION [Suspect]
     Indication: BONE MARROW CONDITIONING REGIMEN
     Dosage: 20 MG/M2, QD, INTRAVENOUS
     Route: 042
     Dates: start: 20070624, end: 20070626
  2. MELPHALAN HYDROCHLORIDE [Suspect]
     Indication: BONE MARROW CONDITIONING REGIMEN
     Dosage: 70 MG/M2, QD, INTRAVENOUS
     Route: 042
     Dates: start: 20070630, end: 20070701
  3. THIOTEPA [Suspect]
     Indication: BONE MARROW CONDITIONING REGIMEN
     Dosage: 10 MG/KG, ONCE, INTRAVENOUS
     Route: 042
     Dates: start: 20070629, end: 20070629
  4. VANCOMYCIN [Concomitant]
  5. MYCOPHENOLATE MOFETIL [Concomitant]
  6. IPRATROPIUM/ALBUTEROL (SALBUTAMOL, IPRATROPIUM) [Concomitant]
  7. LEVOFLOXAVIN (LEVOFLOXACIN) [Concomitant]
  8. FILGRASTIM (FILGRASTIM) [Concomitant]
  9. MUPIROCIN (DAPTOMYCIN) [Concomitant]
  10. SIROLIMUS (RAPAMUNE) [Concomitant]
  11. MEROPENEM [Concomitant]
  12. PANTOPRAZOLE SODIUM [Concomitant]
  13. MICAFUNGIN SODIUM (MICAFUNGIN SODIUM) [Concomitant]
  14. FOLIC ACID [Concomitant]
  15. METRONIDAZOLE [Concomitant]
  16. HYDROCORTISONE-NEOMYCIN-POLYMYXIN B (HYDROCORTISONE-NEOMYCIN-POLYMYXIN [Concomitant]
  17. PHYTONADIONE [Concomitant]
  18. METHYLPREDNISOLONE [Concomitant]
  19. LEUKINE [Concomitant]
  20. ALBUMIN (HUMAN) [Concomitant]
  21. CYANOCOBALAMIN [Concomitant]
  22. ACYCLOVIR [Concomitant]
  23. SOLIA [Concomitant]

REACTIONS (22)
  - CATHETER SITE ERYTHEMA [None]
  - CATHETER SITE PAIN [None]
  - CONFUSIONAL STATE [None]
  - DEVICE RELATED SEPSIS [None]
  - DIARRHOEA [None]
  - DISEASE PROGRESSION [None]
  - GENERAL PHYSICAL HEALTH DETERIORATION [None]
  - GRAFT VERSUS HOST DISEASE [None]
  - HAEMATEMESIS [None]
  - HAEMOPTYSIS [None]
  - HALLUCINATION [None]
  - HYPERBILIRUBINAEMIA [None]
  - HYPOTENSION [None]
  - LOWER GASTROINTESTINAL HAEMORRHAGE [None]
  - MENTAL STATUS CHANGES [None]
  - MUCOSAL INFLAMMATION [None]
  - NEUTROPENIA [None]
  - PYREXIA [None]
  - RENAL FAILURE ACUTE [None]
  - SPLENOMEGALY [None]
  - STAPHYLOCOCCAL SEPSIS [None]
  - VENOOCCLUSIVE LIVER DISEASE [None]
